FAERS Safety Report 6669571-9 (Version None)
Quarter: 2010Q2

REPORT INFORMATION
  Report Type: 
  Country: None (occurrence: None)
  Receive Date: 20100406
  Receipt Date: 20100401
  Transmission Date: 20101027
  Serious: Yes (Hospitalization)
  Sender: FDA-Public Use
  Company Number: AU-B.I. PHARMACEUTICALS,INC./RIDGEFIELD-2010-AU-00257AU

PATIENT
  Age: 85 Year
  Sex: Female

DRUGS (2)
  1. MICARDIS [Suspect]
     Route: 048
  2. CADUET [Concomitant]

REACTIONS (1)
  - SEPSIS [None]
